FAERS Safety Report 8508864-7 (Version None)
Quarter: 2012Q3

REPORT INFORMATION
  Report Type: 
  Country: None (occurrence: None)
  Receive Date: 20120713
  Receipt Date: 20120710
  Transmission Date: 20120928
  Serious: No
  Sender: FDA-Public Use
  Company Number: US-PFIZER INC-2012101386

PATIENT
  Sex: Male

DRUGS (2)
  1. NEURONTIN [Suspect]
     Dosage: 300 MG, 2 TABLETS BY MOUTH 3 TIMES A DAY
     Route: 048
     Dates: start: 20111222
  2. PRISTIQ [Suspect]
     Dosage: UNK

REACTIONS (2)
  - PERSONALITY CHANGE [None]
  - DEPRESSION [None]
